FAERS Safety Report 6773625-6 (Version None)
Quarter: 2010Q2

REPORT INFORMATION
  Report Type: 
  Country: None (occurrence: None)
  Receive Date: 20100614
  Receipt Date: 20100609
  Transmission Date: 20101027
  Serious: Yes (Life-Threatening)
  Sender: FDA-Public Use
  Company Number: 610329

PATIENT
  Age: 64 Year
  Sex: Female
  Weight: 68 kg

DRUGS (2)
  1. CARBOPLATIN [Suspect]
     Indication: OVARIAN CANCER
     Dosage: 255 MG MILLIGRAM(S), INTRAVENOUS
     Route: 042
     Dates: start: 20100323
  2. PACLITAXEL [Concomitant]

REACTIONS (7)
  - CHEST PAIN [None]
  - COLD SWEAT [None]
  - ERYTHEMA [None]
  - HYPERHIDROSIS [None]
  - HYPOTENSION [None]
  - PRURITUS [None]
  - RETCHING [None]
